FAERS Safety Report 6465225-2 (Version None)
Quarter: 2009Q4

REPORT INFORMATION
  Report Type: 
  Country: None (occurrence: None)
  Receive Date: 20091124
  Receipt Date: 20091116
  Transmission Date: 20100525
  Serious: Yes (Death)
  Sender: FDA-Public Use
  Company Number: 2009-4708

PATIENT
  Sex: Female

DRUGS (1)
  1. LANREOTIDE AUTOGEL (LANREOTIDE) [Suspect]
     Dosage: (120 MG,ONCE)
     Dates: start: 20090708, end: 20090708

REACTIONS (1)
  - RENAL FAILURE [None]
